FAERS Safety Report 8932826 (Version 1)
Quarter: 2012Q4

REPORT INFORMATION
  Report Type: Spontaneous
  Country: US (occurrence: None)
  Receive Date: 20121127
  Receipt Date: 20121127
  Transmission Date: 20130627
  Serious: Yes (Hospitalization, Other)
  Sender: FDA-Public Use
  Company Number: None

PATIENT
  Age: 80 Year
  Sex: Male
  Weight: 76.66 kg

DRUGS (1)
  1. XARELTO [Suspect]
     Route: 048

REACTIONS (2)
  - Pulmonary embolism [None]
  - Treatment failure [None]
